FAERS Safety Report 24190789 (Version 2)
Quarter: 2024Q3

REPORT INFORMATION
  Report Type: Spontaneous
  Country: CN (occurrence: CN)
  Receive Date: 20240808
  Receipt Date: 20240816
  Transmission Date: 20241017
  Serious: Yes (Hospitalization)
  Sender: ABBVIE
  Company Number: CN-PFIZER INC-PV202400100741

PATIENT
  Age: 14 Month
  Sex: Male

DRUGS (4)
  1. AVIBACTAM SODIUM [Suspect]
     Active Substance: AVIBACTAM SODIUM
     Indication: Pseudomonal sepsis
     Dosage: UNK
     Route: 065
     Dates: start: 20220826
  2. AMPHOTERICIN B. LIPOSOME [Concomitant]
     Indication: Mucormycosis
     Route: 065
     Dates: start: 20220826
  3. VORICONAZOLE [Concomitant]
     Active Substance: VORICONAZOLE
     Indication: Trichosporon infection
     Dosage: UNK
     Route: 065
     Dates: start: 20220826
  4. CASPOFUNGIN [Concomitant]
     Active Substance: CASPOFUNGIN
     Indication: Antifungal treatment
     Dosage: UNK
     Route: 065
     Dates: start: 20220824

REACTIONS (1)
  - Drug ineffective [Unknown]
